FAERS Safety Report 7571774-6 (Version None)
Quarter: 2011Q2

REPORT INFORMATION
  Report Type: 
  Country: None (occurrence: None)
  Receive Date: 20110624
  Receipt Date: 20110622
  Transmission Date: 20111010
  Serious: Yes (Death, Other)
  Sender: FDA-Public Use
  Company Number: GB-PFIZER INC-2011020315

PATIENT
  Age: 63 Year
  Sex: Female

DRUGS (3)
  1. ZOPICLONE [Concomitant]
     Indication: INSOMNIA
     Dosage: 7.5 MG, UNK
     Route: 048
     Dates: start: 19980101
  2. VARENICLINE TARTRATE [Suspect]
     Indication: SMOKING CESSATION THERAPY
     Dosage: UNK
     Dates: start: 20080317
  3. ESCITALOPRAM [Concomitant]
     Indication: DEPRESSION
     Dosage: 10 MG, UNK
     Route: 048
     Dates: start: 20030101

REACTIONS (2)
  - OVERDOSE [None]
  - COMPLETED SUICIDE [None]
